FAERS Safety Report 21341632 (Version 1)
Quarter: 2022Q3

REPORT INFORMATION
  Report Type: Spontaneous
  Country: US (occurrence: None)
  Receive Date: 20220915
  Receipt Date: 20220915
  Transmission Date: 20221027
  Serious: Yes (Hospitalization)
  Sender: FDA-Public Use
  Company Number: None

PATIENT
  Age: 58 Year
  Sex: Female
  Weight: 70 kg

DRUGS (7)
  1. YESCARTA [Suspect]
     Active Substance: AXICABTAGENE CILOLEUCEL
     Indication: Follicular lymphoma
     Dosage: FREQUENCY : ONCE;?
     Route: 041
     Dates: start: 20220613, end: 20220613
  2. ACTEMRA [Concomitant]
     Active Substance: TOCILIZUMAB
     Dates: start: 20220620
  3. anakinra (Kineret) subcutaneous injection [Concomitant]
     Dates: start: 20220624, end: 20220626
  4. dexAMETHasone (Decadron) injection [Concomitant]
     Dates: start: 20220620, end: 20220703
  5. levETIRAcetam (Keppra) [Concomitant]
     Dates: start: 20220613, end: 20220914
  6. ZOSYN [Concomitant]
     Active Substance: PIPERACILLIN SODIUM\TAZOBACTAM SODIUM
     Dates: start: 20220619, end: 20220623
  7. acyclovir (Zovirax) [Concomitant]
     Dates: start: 20220612, end: 20220915

REACTIONS (2)
  - Cytokine release syndrome [None]
  - Neurotoxicity [None]

NARRATIVE: CASE EVENT DATE: 20220613
